FAERS Safety Report 15810669 (Version 1)
Quarter: 2019Q1

REPORT INFORMATION
  Report Type: Spontaneous
  Country: IT (occurrence: IT)
  Receive Date: 20190111
  Receipt Date: 20190111
  Transmission Date: 20190417
  Serious: Yes (Hospitalization)
  Sender: FDA-Public Use
  Company Number: IT-TEVA-2019-IT-997397

PATIENT
  Age: 70 Year
  Sex: Female

DRUGS (6)
  1. TENORMIN [Concomitant]
     Active Substance: ATENOLOL
     Route: 065
  2. CARDURA [Concomitant]
     Active Substance: DOXAZOSIN MESYLATE
     Route: 065
  3. METFORMIN [Suspect]
     Active Substance: METFORMIN HYDROCHLORIDE
     Indication: TYPE 2 DIABETES MELLITUS
     Dosage: 750 MILLIGRAM DAILY;
     Route: 048
     Dates: start: 20161201, end: 20181214
  4. GLICONORM [Suspect]
     Active Substance: GLYBURIDE\METFORMIN
     Indication: TYPE 2 DIABETES MELLITUS
     Dosage: 1010 MILLIGRAM DAILY;
     Route: 048
     Dates: start: 20161201, end: 20181214
  5. CARDIOASPIRIN [Concomitant]
     Active Substance: ASPIRIN
     Route: 065
  6. TAVACOR [Concomitant]
     Route: 065

REACTIONS (3)
  - Vomiting [Unknown]
  - Lactic acidosis [Unknown]
  - Acute kidney injury [Unknown]

NARRATIVE: CASE EVENT DATE: 20181214
